FAERS Safety Report 23238372 (Version 2)
Quarter: 2024Q1

REPORT INFORMATION
  Report Type: Other
  Country: CO (occurrence: CO)
  Receive Date: 20231129
  Receipt Date: 20240116
  Transmission Date: 20240410
  Serious: No
  Sender: FDA-Public Use
  Company Number: CO-TOLMAR, INC.-23CO044707

PATIENT
  Sex: Male

DRUGS (20)
  1. ELIGARD [Suspect]
     Active Substance: LEUPROLIDE ACETATE
     Indication: Prostate cancer
     Dosage: 45 MILLIGRAM, Q 6 MONTH
     Route: 058
     Dates: start: 20201109
  2. ELIGARD [Suspect]
     Active Substance: LEUPROLIDE ACETATE
     Indication: Prostate cancer
     Dosage: UNK
  3. ABIRATERONE [Concomitant]
     Active Substance: ABIRATERONE
     Indication: Hypertension
     Dosage: 500 MILLIGRAM, Q 12 HR
  4. ABIRATERONE [Concomitant]
     Active Substance: ABIRATERONE
     Indication: Diabetes mellitus
  5. ABIRATERONE [Concomitant]
     Active Substance: ABIRATERONE
     Indication: Hypothyroidism
  6. PREDNISOLONE [Concomitant]
     Active Substance: PREDNISOLONE
     Indication: Hypertension
     Dosage: 5 MILLIGRAM, Q 12 HR
  7. PREDNISOLONE [Concomitant]
     Active Substance: PREDNISOLONE
     Indication: Diabetes mellitus
  8. PREDNISOLONE [Concomitant]
     Active Substance: PREDNISOLONE
     Indication: Hypothyroidism
  9. LOSARTAN [Concomitant]
     Active Substance: LOSARTAN
     Indication: Hypertension
     Dosage: 50 MILLIGRAM, Q 12 HR
  10. LOSARTAN [Concomitant]
     Active Substance: LOSARTAN
     Indication: Diabetes mellitus
  11. LOSARTAN [Concomitant]
     Active Substance: LOSARTAN
     Indication: Hypothyroidism
  12. LEVOTHYROXINE SODIUM [Concomitant]
     Active Substance: LEVOTHYROXINE SODIUM
     Indication: Hypothyroidism
     Dosage: 50 MILLIGRAM, QD
  13. LEVOTHYROXINE SODIUM [Concomitant]
     Active Substance: LEVOTHYROXINE SODIUM
     Indication: Diabetes mellitus
  14. LEVOTHYROXINE SODIUM [Concomitant]
     Active Substance: LEVOTHYROXINE SODIUM
     Indication: Hypertension
  15. ROSUVASTATIN [Concomitant]
     Active Substance: ROSUVASTATIN
     Indication: Diabetes mellitus
     Dosage: 40 MILLIGRAM, QD
  16. ROSUVASTATIN [Concomitant]
     Active Substance: ROSUVASTATIN
     Indication: Hypertension
  17. ROSUVASTATIN [Concomitant]
     Active Substance: ROSUVASTATIN
     Indication: Hypothyroidism
  18. LINAGLIPTIN\METFORMIN HYDROCHLORIDE [Concomitant]
     Active Substance: LINAGLIPTIN\METFORMIN HYDROCHLORIDE
     Indication: Diabetes mellitus
     Dosage: 2 TABLETS
  19. LINAGLIPTIN\METFORMIN HYDROCHLORIDE [Concomitant]
     Active Substance: LINAGLIPTIN\METFORMIN HYDROCHLORIDE
     Indication: Hypertension
     Dosage: HALF TABLET
  20. LINAGLIPTIN\METFORMIN HYDROCHLORIDE [Concomitant]
     Active Substance: LINAGLIPTIN\METFORMIN HYDROCHLORIDE
     Indication: Hypothyroidism

REACTIONS (4)
  - Therapy interrupted [Not Recovered/Not Resolved]
  - Insurance issue [Not Recovered/Not Resolved]
  - Discouragement [Recovered/Resolved]
  - Dizziness [Recovered/Resolved]

NARRATIVE: CASE EVENT DATE: 20220101
